FAERS Safety Report 7259758-9 (Version None)
Quarter: 2011Q1

REPORT INFORMATION
  Report Type: 
  Country: None (occurrence: None)
  Receive Date: 20110130
  Receipt Date: 20100924
  Transmission Date: 20110831
  Serious: No
  Sender: FDA-Public Use
  Company Number: US-ABBOTT-10P-163-0663162-00

PATIENT
  Sex: Female
  Weight: 70.37 kg

DRUGS (5)
  1. IRON INFUSIONS [Concomitant]
     Indication: ANAEMIA
  2. VITAMIN B-12 [Concomitant]
     Indication: VITAMIN SUPPLEMENTATION
  3. VITAMIN D [Concomitant]
     Indication: VITAMIN SUPPLEMENTATION
  4. IRON [Concomitant]
     Indication: ANAEMIA
  5. HUMIRA [Suspect]
     Indication: CROHN'S DISEASE
     Dates: start: 20100721

REACTIONS (4)
  - INJECTION SITE ERYTHEMA [None]
  - INCORRECT DOSE ADMINISTERED [None]
  - INJECTION SITE PAIN [None]
  - DEVICE MALFUNCTION [None]
